FAERS Safety Report 17365326 (Version 1)
Quarter: 2020Q1

REPORT INFORMATION
  Report Type: Report from Study
  Country: PL (occurrence: PL)
  Receive Date: 20200204
  Receipt Date: 20200204
  Transmission Date: 20200409
  Serious: Yes (Hospitalization, Other)
  Sender: FDA-Public Use
  Company Number: PL-APNAR-000047

PATIENT
  Age: 61 Year
  Sex: Female

DRUGS (5)
  1. BUPROPION. [Suspect]
     Active Substance: BUPROPION
     Indication: ANTIDEPRESSANT THERAPY
  2. PERINDOPRIL/PERINDOPRIL ERBUMINE [Concomitant]
     Active Substance: PERINDOPRIL ERBUMINE
  3. METOPROLOL. [Interacting]
     Active Substance: METOPROLOL
     Indication: HYPERTENSION
  4. INDAPAMIDE. [Concomitant]
     Active Substance: INDAPAMIDE
  5. LERCANIDIPINE [Concomitant]
     Active Substance: LERCANIDIPINE

REACTIONS (5)
  - Dizziness [Unknown]
  - Bradycardia [Unknown]
  - Drug level increased [Unknown]
  - Hypotension [Unknown]
  - Drug interaction [Unknown]
